FAERS Safety Report 20758637 (Version 2)
Quarter: 2022Q2

REPORT INFORMATION
  Report Type: Other
  Country: JP (occurrence: JP)
  Receive Date: 20220427
  Receipt Date: 20220428
  Transmission Date: 20220721
  Serious: Yes (Hospitalization, Other)
  Sender: FDA-Public Use
  Company Number: JP-CHUGAI-2022015185

PATIENT
  Age: 79 Year
  Sex: Male

DRUGS (5)
  1. AVASTIN [Suspect]
     Active Substance: BEVACIZUMAB
     Indication: Colon cancer
     Dosage: 5 MILLIGRAM/SQ. METER, ONCE/2WEEKS
     Route: 041
     Dates: start: 201911
  2. OXALIPLATIN [Concomitant]
     Active Substance: OXALIPLATIN
     Indication: Colon cancer
     Dosage: 65 MILLIGRAM/SQ. METER, ONCE/2WEEKS
     Route: 041
     Dates: start: 201911
  3. FLUOROURACIL [Concomitant]
     Active Substance: FLUOROURACIL
     Indication: Colon cancer
     Dosage: 320 MILLIGRAM/SQ. METER, ONCE/2WEEKS
     Route: 040
     Dates: start: 201911
  4. FLUOROURACIL [Concomitant]
     Active Substance: FLUOROURACIL
     Dosage: 1900 MILLIGRAM/SQ. METER
     Route: 041
     Dates: start: 201911
  5. LEVOLEUCOVORIN CALCIUM [Concomitant]
     Active Substance: LEVOLEUCOVORIN CALCIUM
     Indication: Colon cancer
     Dosage: 160 MILLIGRAM/SQ. METER, ONCE/2WEEKS
     Route: 041
     Dates: start: 201911

REACTIONS (3)
  - Peritonitis [Unknown]
  - Large intestine perforation [Unknown]
  - Myelosuppression [Unknown]
